FAERS Safety Report 25430312 (Version 2)
Quarter: 2025Q2

REPORT INFORMATION
  Report Type: Report from Study
  Country: IT (occurrence: IT)
  Receive Date: 20250612
  Receipt Date: 20250626
  Transmission Date: 20250716
  Serious: Yes (Other)
  Sender: PFIZER
  Company Number: None

PATIENT
  Age: 37 Year
  Sex: Female
  Weight: 49 kg

DRUGS (2)
  1. CARBOPLATIN [Interacting]
     Active Substance: CARBOPLATIN
     Indication: Cervix carcinoma stage IV
     Route: 042
     Dates: start: 20240509
  2. PACLITAXEL [Interacting]
     Active Substance: PACLITAXEL
     Indication: Cervix carcinoma stage IV
     Dosage: 207.9 MG (175MG/MQ), EVERY 3 WEEKS
     Route: 042
     Dates: start: 20240509, end: 20240509

REACTIONS (6)
  - Drug hypersensitivity [Recovered/Resolved]
  - Flushing [Recovered/Resolved]
  - Dyspnoea [Recovered/Resolved]
  - Chest pain [Recovered/Resolved]
  - Chest discomfort [Recovered/Resolved]
  - Drug interaction [Recovered/Resolved]

NARRATIVE: CASE EVENT DATE: 20240509
